FAERS Safety Report 18883910 (Version 2)
Quarter: 2021Q2

REPORT INFORMATION
  Report Type: Spontaneous
  Country: US (occurrence: US)
  Receive Date: 20210212
  Receipt Date: 20210520
  Transmission Date: 20210717
  Serious: Yes (Hospitalization)
  Sender: FDA-Public Use
  Company Number: US-SA-2021SA042973

PATIENT
  Age: 53 Year
  Sex: Female
  Weight: 62 kg

DRUGS (44)
  1. MIRALAX [Concomitant]
     Active Substance: POLYETHYLENE GLYCOL 3350
  2. ACETAMINOPHEN. [Concomitant]
     Active Substance: ACETAMINOPHEN
  3. NORMAL SALINE [Concomitant]
     Active Substance: SODIUM CHLORIDE
  4. ASPIRIN KOMPLEX [Concomitant]
  5. PANTOPRAZOLE [Concomitant]
     Active Substance: PANTOPRAZOLE
  6. CALCITRIOL. [Concomitant]
     Active Substance: CALCITRIOL
  7. LIDOCAINE/PRILOCAINE [Concomitant]
     Active Substance: LIDOCAINE\PRILOCAINE
  8. ZOFRAN [Concomitant]
     Active Substance: ONDANSETRON HYDROCHLORIDE
  9. GABAPENTIN. [Concomitant]
     Active Substance: GABAPENTIN
  10. CODEINE [Concomitant]
     Active Substance: CODEINE
  11. BISACODYL. [Concomitant]
     Active Substance: BISACODYL
  12. HYDRALAZINE [Concomitant]
     Active Substance: HYDRALAZINE HYDROCHLORIDE
  13. VENTOLIN [Concomitant]
     Active Substance: ALBUTEROL SULFATE
  14. MAGNESIUM [Concomitant]
     Active Substance: MAGNESIUM
  15. FLUBLOK [Concomitant]
     Active Substance: INFLUENZA A VIRUS A/CALIFORNIA/7/2009 (H1N1) RECOMBINANT HEMAGGLUTININ ANTIGEN\INFLUENZA A VIRUS A/VICTORIA/361/2011 (H3N2) RECOMBINANT HEMAGGLUTININ ANTIGEN\INFLUENZA B VIRUS B/WISCONSIN/1/2010 RECOMBINANT HEMAGGLUTININ ANTIGEN
  16. MACROBID [CLARITHROMYCIN] [Concomitant]
     Active Substance: CLARITHROMYCIN
  17. BACLOFEN. [Concomitant]
     Active Substance: BACLOFEN
  18. MECLIZINE HCL [Concomitant]
     Active Substance: MECLIZINE HYDROCHLORIDE
  19. ZOFRAN ODT [Concomitant]
     Active Substance: ONDANSETRON HYDROCHLORIDE
  20. FABRAZYME [Suspect]
     Active Substance: AGALSIDASE BETA
     Indication: FABRY^S DISEASE
     Dosage: 65 MG, QOW
     Route: 040
     Dates: start: 20070323
  21. VITAMIN D3 [Concomitant]
     Active Substance: CHOLECALCIFEROL
  22. BENZONATATE. [Concomitant]
     Active Substance: BENZONATATE
  23. STERILE WATER [Concomitant]
     Active Substance: WATER
  24. SEVELAMER [Concomitant]
     Active Substance: SEVELAMER
  25. DIPHENHYDRAMINE. [Concomitant]
     Active Substance: DIPHENHYDRAMINE
  26. MECLIZINE [Concomitant]
     Active Substance: MECLIZINE HYDROCHLORIDE
  27. NIFEDIPINE. [Concomitant]
     Active Substance: NIFEDIPINE
  28. SODIUM BICARBONATE. [Concomitant]
     Active Substance: SODIUM BICARBONATE
  29. DULCOLAX (BISACODYL) [Concomitant]
     Active Substance: BISACODYL
  30. WARFARIN SODIUM. [Concomitant]
     Active Substance: WARFARIN SODIUM
  31. NITROFURANTOIN. [Concomitant]
     Active Substance: NITROFURANTOIN
  32. TRIAMCINOLONE [Concomitant]
     Active Substance: TRIAMCINOLONE
  33. HYDROXYZINE [Concomitant]
     Active Substance: HYDROXYZINE HYDROCHLORIDE
  34. PROCHLORPERAZINE. [Concomitant]
     Active Substance: PROCHLORPERAZINE
  35. PROGESTERONE. [Concomitant]
     Active Substance: PROGESTERONE
  36. DULCOLAXO [Concomitant]
     Active Substance: BISACODYL
  37. FABRAZYME [Suspect]
     Active Substance: AGALSIDASE BETA
     Indication: RENAL TRANSPLANT
  38. EPINEPHRINE. [Concomitant]
     Active Substance: EPINEPHRINE
  39. FUROSEMIDE. [Concomitant]
     Active Substance: FUROSEMIDE
  40. HEPARIN [Concomitant]
     Active Substance: HEPARIN SODIUM
  41. TACROLIMUS. [Concomitant]
     Active Substance: TACROLIMUS
  42. DOCUSATE SODIUM. [Concomitant]
     Active Substance: DOCUSATE SODIUM
  43. METOPROLOL TARTRATE. [Concomitant]
     Active Substance: METOPROLOL TARTRATE
  44. MICROBID [Concomitant]
     Active Substance: SULFAMETHOXAZOLE\TRIMETHOPRIM

REACTIONS (5)
  - Blood pressure increased [Unknown]
  - Hospitalisation [Unknown]
  - Off label use [Unknown]
  - Inappropriate schedule of product administration [Unknown]
  - Dialysis [Unknown]

NARRATIVE: CASE EVENT DATE: 20210511
